FAERS Safety Report 4703191-8 (Version None)
Quarter: 2005Q2

REPORT INFORMATION
  Report Type: 
  Country: None (occurrence: None)
  Receive Date: 20050624
  Receipt Date: 20050523
  Transmission Date: 20051028
  Serious: No
  Sender: FDA-Public Use
  Company Number: 2005BI010200

PATIENT
  Age: 77 Year
  Sex: Female
  Weight: 87.9978 kg

DRUGS (2)
  1. NATALIZUMAB [Suspect]
     Indication: MULTIPLE SCLEROSIS
     Dosage: 300 MG; QM; IV
     Route: 042
     Dates: start: 20050124, end: 20050201
  2. COPAXONE [Concomitant]

REACTIONS (5)
  - DACRYOSTENOSIS ACQUIRED [None]
  - DYSPHAGIA [None]
  - INDURATION [None]
  - LACRIMATION INCREASED [None]
  - RHINORRHOEA [None]
